FAERS Safety Report 9492034 (Version 1)
Quarter: 2013Q3

REPORT INFORMATION
  Report Type: Spontaneous
  Country: FR (occurrence: FR)
  Receive Date: 20130830
  Receipt Date: 20130830
  Transmission Date: 20140515
  Serious: Yes (Hospitalization)
  Sender: FDA-Public Use
  Company Number: FR-SANOFI-AVENTIS-2013SA086046

PATIENT
  Age: 77 Year
  Sex: Male

DRUGS (3)
  1. LOVENOX [Suspect]
     Indication: PRODUCT USED FOR UNKNOWN INDICATION
     Route: 058
     Dates: start: 201304
  2. LOVENOX [Suspect]
     Indication: PRODUCT USED FOR UNKNOWN INDICATION
     Route: 058
  3. VALSARTAN [Concomitant]
     Route: 048

REACTIONS (3)
  - Anaemia [Unknown]
  - Haematoma [Recovered/Resolved]
  - Ecchymosis [Recovered/Resolved]
